FAERS Safety Report 23034420 (Version 3)
Quarter: 2023Q4

REPORT INFORMATION
  Report Type: Spontaneous
  Country: IT (occurrence: IT)
  Receive Date: 20231005
  Receipt Date: 20231013
  Transmission Date: 20240109
  Serious: Yes (Death)
  Sender: FDA-Public Use
  Company Number: IT-MINISAL02-930373

PATIENT
  Age: 59 Year
  Sex: Male
  Weight: 65 kg

DRUGS (9)
  1. GEMCITABINE HYDROCHLORIDE [Suspect]
     Active Substance: GEMCITABINE HYDROCHLORIDE
     Indication: Transitional cell carcinoma
     Dosage: 1350 MG (77% OF THE FULL DOSE)
     Route: 065
     Dates: start: 20230316, end: 20230316
  2. OXYCONTIN [Concomitant]
     Active Substance: OXYCODONE HYDROCHLORIDE
     Indication: Analgesic therapy
     Dosage: 40 MG TWICE A DAY
     Route: 048
  3. DEXAMETHASONE [Concomitant]
     Active Substance: DEXAMETHASONE
     Indication: Chemotherapy side effect prophylaxis
     Dosage: 8 MILLIGRAM
     Route: 065
     Dates: start: 20230316
  4. RIFAXIMIN [Concomitant]
     Active Substance: RIFAXIMIN
     Indication: Diverticulitis
     Dosage: UNK
     Route: 065
  5. ONDANSETRON [Concomitant]
     Active Substance: ONDANSETRON
     Indication: Chemotherapy side effect prophylaxis
     Dosage: 8 MILLIGRAM
     Route: 065
     Dates: start: 20230316
  6. ASPIRIN [Concomitant]
     Active Substance: ASPIRIN
     Indication: Thrombosis prophylaxis
     Dosage: 100 MILLIGRAM, DAILY
     Route: 048
  7. KETOROLAC [Concomitant]
     Active Substance: KETOROLAC TROMETHAMINE
     Indication: Product used for unknown indication
     Dosage: 30 MILLIGRAM, DAILY
     Route: 065
  8. RAMIPRIL [Concomitant]
     Active Substance: RAMIPRIL
     Indication: Hypertension
     Dosage: 2.5 MILLIGRAM, DAILY
     Route: 048
  9. BISOPROLOL [Concomitant]
     Active Substance: BISOPROLOL\BISOPROLOL FUMARATE
     Indication: Hypertension
     Dosage: 2.5 MILLIGRAM, DAILY, 1 TABLET H 8
     Route: 048

REACTIONS (1)
  - Acute myocardial infarction [Fatal]

NARRATIVE: CASE EVENT DATE: 20230317
